FAERS Safety Report 7703867-4 (Version None)
Quarter: 2011Q3

REPORT INFORMATION
  Report Type: 
  Country: None (occurrence: None)
  Receive Date: 20110823
  Receipt Date: 20110809
  Transmission Date: 20111222
  Serious: Yes (Other)
  Sender: FDA-Public Use
  Company Number: US-BAYER-2011-068137

PATIENT
  Age: 84 Year
  Sex: Female

DRUGS (1)
  1. NEXAVAR [Suspect]
     Indication: HEPATIC NEOPLASM MALIGNANT
     Dosage: 400 MG, BID
     Route: 048
     Dates: start: 20110728, end: 20110811

REACTIONS (6)
  - PYREXIA [None]
  - FATIGUE [None]
  - GAIT DISTURBANCE [None]
  - HYPERSOMNIA [None]
  - CONFUSIONAL STATE [None]
  - COUGH [None]
